FAERS Safety Report 24899146 (Version 1)
Quarter: 2025Q1

REPORT INFORMATION
  Report Type: Spontaneous
  Country: US (occurrence: None)
  Receive Date: 20250128
  Receipt Date: 20250128
  Transmission Date: 20250408
  Serious: Yes (Life-Threatening, Hospitalization)
  Sender: FDA-CTU
  Company Number: None

PATIENT
  Age: 69 Year
  Sex: Male
  Weight: 108 kg

DRUGS (1)
  1. PEMBROLIZUMAB [Suspect]
     Active Substance: PEMBROLIZUMAB
     Indication: Renal cell carcinoma
     Dates: start: 20240101, end: 20250118

REACTIONS (10)
  - Cardiac arrest [None]
  - Arthralgia [None]
  - Rash [None]
  - Pneumonitis [None]
  - Acute kidney injury [None]
  - Toxicity to various agents [None]
  - Myositis [None]
  - Muscular weakness [None]
  - Dialysis [None]
  - Pyrexia [None]

NARRATIVE: CASE EVENT DATE: 20240118
